FAERS Safety Report 19117415 (Version 1)
Quarter: 2021Q2

REPORT INFORMATION
  Report Type: Spontaneous
  Country: US (occurrence: US)
  Receive Date: 20210409
  Receipt Date: 20210409
  Transmission Date: 20210717
  Serious: Yes (Other)
  Sender: FDA-Public Use
  Company Number: US-PFIZER INC-2021366801

PATIENT
  Age: 77 Year
  Sex: Female
  Weight: 67.13 kg

DRUGS (1)
  1. SPIRONOLACTONE. [Suspect]
     Active Substance: SPIRONOLACTONE
     Dosage: 25 MG, 1X/DAY
     Route: 048
     Dates: start: 202101

REACTIONS (4)
  - Haematochezia [Unknown]
  - Haemorrhoids [Unknown]
  - Rectal haemorrhage [Not Recovered/Not Resolved]
  - Intestinal obstruction [Unknown]

NARRATIVE: CASE EVENT DATE: 202101
